FAERS Safety Report 5241165-1 (Version None)
Quarter: 2007Q1

REPORT INFORMATION
  Report Type: 
  Country: None (occurrence: None)
  Receive Date: 20070220
  Receipt Date: 20070214
  Transmission Date: 20070707
  Serious: Yes (Hospitalization)
  Sender: FDA-Public Use
  Company Number: 2007CG00006

PATIENT
  Age: 82 Year
  Sex: Female
  Weight: 44 kg

DRUGS (10)
  1. OMEPRAZOLE [Suspect]
     Route: 048
     Dates: end: 20060501
  2. PERINDOPRIL ERBUMINE [Suspect]
     Route: 048
     Dates: end: 20060501
  3. LANSOPRAZOLE [Suspect]
     Route: 048
     Dates: end: 20060501
  4. LASIX [Concomitant]
  5. TARDYFERON [Concomitant]
  6. PREVISCAN [Concomitant]
  7. CORDARONE [Concomitant]
  8. HEMIGOXINE [Concomitant]
  9. DAFALGAN [Concomitant]
  10. TAHOR [Concomitant]

REACTIONS (1)
  - HAEMOLYSIS [None]
